FAERS Safety Report 7960567-3 (Version None)
Quarter: 2011Q4

REPORT INFORMATION
  Report Type: 
  Country: None (occurrence: None)
  Receive Date: 20111206
  Receipt Date: 20111122
  Transmission Date: 20120403
  Serious: Yes (Other)
  Sender: FDA-Public Use
  Company Number: US-ROCHE-1015512

PATIENT
  Sex: Female

DRUGS (6)
  1. ACTONEL [Suspect]
     Indication: OSTEOPOROSIS
     Route: 065
     Dates: start: 19990501
  2. FOSAMAX [Suspect]
     Indication: OSTEOPOROSIS
     Route: 065
     Dates: start: 19990501
  3. FOSAMAX [Suspect]
     Route: 065
     Dates: start: 20030101, end: 20091001
  4. BONIVA [Suspect]
     Indication: OSTEOPOROSIS
     Route: 065
     Dates: start: 19990501
  5. ACTONEL [Suspect]
     Route: 065
     Dates: start: 20030101, end: 20091001
  6. BONIVA [Suspect]
     Route: 065
     Dates: start: 20030101, end: 20091001

REACTIONS (3)
  - FEMUR FRACTURE [None]
  - EMOTIONAL DISTRESS [None]
  - BONE DISORDER [None]
